FAERS Safety Report 8657225 (Version 3)
Quarter: 2012Q4

REPORT INFORMATION
  Report Type: 
  Country: US (occurrence: US)
  Receive Date: 20120710
  Receipt Date: 20120904
  Transmission Date: 20130627
  Serious: Yes (Hospitalization)
  Sender: FDA-Public Use
  Company Number: US-AMGEN-USASP2012041702

PATIENT
  Age: 72 Year
  Sex: Female
  Weight: 72.56 kg

DRUGS (10)
  1. PROLIA [Suspect]
     Indication: OSTEOPOROSIS POSTMENOPAUSAL
     Dosage: 60 mg, q6mo
     Route: 058
     Dates: start: 20120229
  2. VITAMIN D /00107901/ [Concomitant]
     Dosage: 1 UNK, UNK
  3. AMLODIPINE [Concomitant]
     Dosage: UNK UNK, qd
  4. BABY ASPIRIN [Concomitant]
     Dosage: UNK
  5. COQ10                              /00517201/ [Concomitant]
  6. ANTIBIOTICS [Concomitant]
     Dates: start: 201203, end: 20120704
  7. DOMPERIDONE [Concomitant]
     Indication: HIATUS HERNIA
  8. VITAMIN C                          /00008001/ [Concomitant]
  9. VITAMIN E                          /00110501/ [Concomitant]
  10. VITAMIN B [Concomitant]

REACTIONS (4)
  - Diverticulitis [Recovering/Resolving]
  - Colon operation [Recovered/Resolved]
  - Spinal compression fracture [Unknown]
  - Gastrointestinal disorder [Recovered/Resolved]
